FAERS Safety Report 12584747 (Version 6)
Quarter: 2020Q4

REPORT INFORMATION
  Report Type: Spontaneous
  Country: US (occurrence: US)
  Receive Date: 20160722
  Receipt Date: 20201112
  Transmission Date: 20210113
  Serious: Yes (Other)
  Sender: FDA-Public Use
  Company Number: US-LUNDBECK-DKLU2016698

PATIENT
  Age: 62 Year
  Sex: Female

DRUGS (4)
  1. NORTHERA [Suspect]
     Active Substance: DROXIDOPA
     Indication: AUTONOMIC NEUROPATHY
     Dosage: TITRATION COMPLETE
     Route: 065
     Dates: start: 201606
  2. NORTHERA [Suspect]
     Active Substance: DROXIDOPA
     Route: 048
  3. NORTHERA [Suspect]
     Active Substance: DROXIDOPA
     Route: 065
     Dates: start: 20150323
  4. NORTHERA [Suspect]
     Active Substance: DROXIDOPA
     Indication: ORTHOSTATIC HYPOTENSION
     Route: 065
     Dates: start: 201502, end: 2019

REACTIONS (12)
  - Hip fracture [Unknown]
  - Tibia fracture [Unknown]
  - Loss of consciousness [Unknown]
  - Hypotension [Not Recovered/Not Resolved]
  - Incorrect dose administered [Unknown]
  - Wrist fracture [Unknown]
  - Blood pressure decreased [Not Recovered/Not Resolved]
  - Clavicle fracture [Unknown]
  - Product dose omission issue [Unknown]
  - Rib fracture [Unknown]
  - Fall [Unknown]
  - Pain [Unknown]

NARRATIVE: CASE EVENT DATE: 2017
